FAERS Safety Report 4869984-1 (Version None)
Quarter: 2005Q4

REPORT INFORMATION
  Report Type: 
  Country: None (occurrence: None)
  Receive Date: 20051230
  Receipt Date: 20051215
  Transmission Date: 20060501
  Serious: Yes (Life-Threatening, Hospitalization)
  Sender: FDA-Public Use
  Company Number: FR-ABBOTT-05P-056-0319741-00

PATIENT
  Age: 52 Year
  Sex: Male

DRUGS (12)
  1. DEPAKINE CHRONO TABLETS [Suspect]
     Indication: INTRACRANIAL INJURY
     Route: 048
     Dates: start: 20010101
  2. ZOPICLONE [Suspect]
     Indication: DRUG USE FOR UNKNOWN INDICATION
     Route: 048
     Dates: end: 20050801
  3. ZOPICLONE [Suspect]
     Route: 048
     Dates: start: 20050922, end: 20051003
  4. CIPROFLOXACIN [Suspect]
     Indication: DRUG USE FOR UNKNOWN INDICATION
     Route: 048
     Dates: start: 20050925, end: 20050930
  5. LAMOTRIGINE [Suspect]
     Indication: INTRACRANIAL INJURY
     Route: 048
     Dates: start: 20050907, end: 20050912
  6. LAMOTRIGINE [Suspect]
     Route: 048
     Dates: start: 20050913, end: 20051003
  7. TIANEPTINE [Suspect]
     Indication: DRUG USE FOR UNKNOWN INDICATION
     Route: 048
     Dates: start: 20040101
  8. TIANEPTINE [Suspect]
  9. IOBITRIDOL [Suspect]
     Indication: ABDOMEN SCAN
     Route: 042
     Dates: start: 20050920, end: 20050920
  10. IOBITRIDOL [Suspect]
     Dates: start: 20051003, end: 20051003
  11. ALENDRONATE SODIUM [Concomitant]
     Indication: DRUG USE FOR UNKNOWN INDICATION
     Route: 048
  12. OROCAL D3 [Concomitant]
     Indication: DRUG USE FOR UNKNOWN INDICATION
     Route: 048

REACTIONS (18)
  - CHILLS [None]
  - DRUG INEFFECTIVE [None]
  - DYSPHAGIA [None]
  - EOSINOPHILIA [None]
  - FACE OEDEMA [None]
  - GASTROOESOPHAGEAL REFLUX DISEASE [None]
  - LICHENOID KERATOSIS [None]
  - LIP DISORDER [None]
  - MUCOSAL EROSION [None]
  - OEDEMA MOUTH [None]
  - OXYGEN SATURATION DECREASED [None]
  - PANCREATITIS ACUTE [None]
  - PRODUCTIVE COUGH [None]
  - PRURITUS [None]
  - PYREXIA [None]
  - RASH MACULO-PAPULAR [None]
  - RASH MORBILLIFORM [None]
  - RHONCHI [None]
